FAERS Safety Report 16498373 (Version 2)
Quarter: 2020Q3

REPORT INFORMATION
  Report Type: Report from Study
  Country: DE (occurrence: DE)
  Receive Date: 20190629
  Receipt Date: 20190705
  Transmission Date: 20201104
  Serious: Yes (Hospitalization)
  Sender: FDA-Public Use
  Company Number: DE-ROCHE-2328385

PATIENT
  Age: 80 Year
  Sex: Female
  Weight: 68.2 kg

DRUGS (29)
  1. PANTOZOL [Concomitant]
     Active Substance: PANTOPRAZOLE SODIUM
     Indication: GASTRITIS
     Route: 048
     Dates: start: 20140101
  2. SALMETEROL [Concomitant]
     Active Substance: SALMETEROL
     Indication: ASTHMA
     Dosage: INHALED
     Route: 065
     Dates: start: 19690101
  3. METOCLOPRAMID [METOCLOPRAMIDE] [Concomitant]
     Active Substance: METOCLOPRAMIDE
     Route: 048
     Dates: start: 20190405
  4. PREDNISOLON [PREDNISOLONE] [Concomitant]
     Active Substance: PREDNISOLONE
     Indication: NAUSEA
     Route: 048
     Dates: start: 20190429, end: 20190430
  5. OLIMEL [Concomitant]
     Active Substance: AMINO ACIDS\DEXTROSE\SOYBEAN OIL
     Indication: DIARRHOEA
     Route: 042
     Dates: start: 20190502, end: 20190506
  6. TAZOBAC [Concomitant]
     Active Substance: PIPERACILLIN SODIUM\TAZOBACTAM SODIUM
     Indication: BACTERAEMIA
     Route: 042
     Dates: start: 20190504, end: 20190507
  7. CANDESARTAN. [Concomitant]
     Active Substance: CANDESARTAN
     Indication: HYPERTENSION
     Route: 048
     Dates: start: 20040101
  8. PARACETAMOL [Concomitant]
     Active Substance: ACETAMINOPHEN
     Route: 048
     Dates: start: 20190403
  9. STEROFUNDIN [Concomitant]
     Active Substance: CALCIUM CHLORIDE\MAGNESIUM CHLORIDE\POTASSIUM CHLORIDE\SODIUM ACETATE\SODIUM CHLORIDE
     Route: 042
     Dates: start: 20190430, end: 20190507
  10. RITUXIMAB. [Suspect]
     Active Substance: RITUXIMAB
     Indication: DIFFUSE LARGE B-CELL LYMPHOMA
     Dosage: ON 16/MAY/2019, SHE RECEIVED MOST RECENT DOSE OF 633 MG PRIOR TO EVENT ONSET.
     Route: 041
     Dates: start: 20190403
  11. PREDNISONE. [Suspect]
     Active Substance: PREDNISONE
     Indication: DIFFUSE LARGE B-CELL LYMPHOMA
     Dosage: AT 100 MILLIGRAMS PER DAY (MG/DAY) ORALLY (PO) ON DAYS 1?5 OF EVERY 21?DAY CYCLE FOR 6 CYCLES.?MOST
     Route: 048
     Dates: start: 20190403
  12. FLUTICASON [Concomitant]
     Active Substance: FLUTICASONE
     Indication: ASTHMA
     Dosage: INHALED
     Route: 065
     Dates: start: 19690101
  13. DEXAMETHASONE. [Concomitant]
     Active Substance: DEXAMETHASONE
     Indication: NAUSEA
     Route: 042
     Dates: start: 20190429, end: 20190429
  14. POLATUZUMAB VEDOTIN. [Suspect]
     Active Substance: POLATUZUMAB VEDOTIN
     Indication: DIFFUSE LARGE B-CELL LYMPHOMA
     Dosage: ON 17/MAY/2019, SHE RECEIVED MOST RECENT DOSE PRIOR TO SERIOUS ADVERSE EVENT ONSET.
     Route: 042
     Dates: start: 20190404
  15. MIRTAZAPIN [Concomitant]
     Active Substance: MIRTAZAPINE
     Indication: DEPRESSION
     Route: 048
     Dates: start: 20190503, end: 20190503
  16. PLACEBO [Suspect]
     Active Substance: UNSPECIFIED INGREDIENT
     Indication: DIFFUSE LARGE B-CELL LYMPHOMA
     Dosage: ON 17/MAY/2019, SHE RECEIVED MOST RECENT DOSE PRIOR TO SERIOUS ADVERSE EVENT ONSET.
     Route: 042
     Dates: start: 20190404
  17. CLEMASTIN [Concomitant]
     Active Substance: CLEMASTINE
     Route: 042
     Dates: start: 20190403
  18. FENTANYL. [Concomitant]
     Active Substance: FENTANYL
     Indication: BONE PAIN
     Dosage: 12 (OTHER)
     Route: 062
     Dates: start: 20190415
  19. VOMACUR [Concomitant]
     Active Substance: DIMENHYDRINATE
     Indication: NAUSEA
     Route: 048
     Dates: start: 20190430, end: 20190503
  20. AMPHO MORONAL [Concomitant]
     Active Substance: AMPHOTERICIN B
     Indication: PROPHYLAXIS
     Route: 048
     Dates: start: 20190327
  21. ADELLA [Concomitant]
     Indication: DIARRHOEA
     Dosage: 1 AMPOULE
     Route: 042
     Dates: start: 20190502, end: 20190506
  22. DOXORUBICIN [Suspect]
     Active Substance: DOXORUBICIN
     Indication: DIFFUSE LARGE B-CELL LYMPHOMA
     Dosage: ON 17/MAY/2019, SHE RECEIVED MOST RECENT DOSE OF 84 MG OF DOXORUBICIN PRIOR TO EVENT ONSET.
     Route: 042
     Dates: start: 20190404
  23. DIGITOXIN [Concomitant]
     Active Substance: DIGITOXIN
     Indication: CARDIAC FAILURE
     Route: 048
     Dates: start: 20181010
  24. VERAPAMIL [Concomitant]
     Active Substance: VERAPAMIL HYDROCHLORIDE
     Indication: HYPERTENSION
     Route: 048
     Dates: start: 2004
  25. STEROFUNDIN [Concomitant]
     Active Substance: CALCIUM CHLORIDE\MAGNESIUM CHLORIDE\POTASSIUM CHLORIDE\SODIUM ACETATE\SODIUM CHLORIDE
     Indication: NAUSEA
     Route: 042
     Dates: start: 20190429, end: 20190429
  26. PREDNISOLON [PREDNISOLONE] [Concomitant]
     Active Substance: PREDNISOLONE
     Indication: GENERAL PHYSICAL HEALTH DETERIORATION
     Route: 048
     Dates: start: 20190314
  27. CYCLOPHOSPHAMIDE. [Suspect]
     Active Substance: CYCLOPHOSPHAMIDE
     Indication: DIFFUSE LARGE B-CELL LYMPHOMA
     Dosage: MOST RECENT DOSE OF 1267 MG OF CYCLOPHOSPHAMIDE: 17MAY2019
     Route: 042
     Dates: start: 20190404
  28. ACICLOVIR [Concomitant]
     Active Substance: ACYCLOVIR
     Route: 048
     Dates: start: 20190405
  29. VOMEX A [Concomitant]
     Active Substance: DIMENHYDRINATE
     Indication: NAUSEA
     Dosage: 1 AMPOULE
     Route: 042
     Dates: start: 20190429, end: 20190506

REACTIONS (1)
  - Staphylococcal sepsis [Recovered/Resolved]

NARRATIVE: CASE EVENT DATE: 20190528
